FAERS Safety Report 25207031 (Version 1)
Quarter: 2025Q2

REPORT INFORMATION
  Report Type: Spontaneous
  Country: US (occurrence: None)
  Receive Date: 20250416
  Receipt Date: 20250416
  Transmission Date: 20250717
  Serious: Yes (Other)
  Sender: FDA-CTU
  Company Number: None

PATIENT
  Sex: Female

DRUGS (10)
  1. BOTOX [Suspect]
     Active Substance: ONABOTULINUMTOXINA
     Indication: Migraine
     Route: 042
     Dates: start: 20230912
  2. ABILIFY TAB 15MG [Concomitant]
  3. AMBIEN [Concomitant]
     Active Substance: ZOLPIDEM TARTRATE
  4. AMILOR/HCTZ TAB 5-50 [Concomitant]
  5. CELEBREX CAP 200MG [Concomitant]
  6. LEVOTHYROXIN TAB 75MCG [Concomitant]
  7. NORVASC [Concomitant]
     Active Substance: AMLODIPINE BESYLATE
  8. OXYBUTYNIN TAB 5MG ER [Concomitant]
  9. OZEMPIC INJ 2MG/3ML [Concomitant]
  10. PAXIL CR TAB 25MG [Concomitant]

REACTIONS (1)
  - Skull fracture [None]
